FAERS Safety Report 5108104-5 (Version None)
Quarter: 2006Q3

REPORT INFORMATION
  Report Type: 
  Country: None (occurrence: None)
  Receive Date: 20060919
  Receipt Date: 20060913
  Transmission Date: 20061208
  Serious: Yes (Other)
  Sender: FDA-Public Use
  Company Number: US-JNJFOC-20060903304

PATIENT
  Sex: Female
  Weight: 58.97 kg

DRUGS (5)
  1. EXTRA STRENGTH TYLENOL [Suspect]
  2. EXTRA STRENGTH TYLENOL [Suspect]
     Indication: PAIN
     Dosage: AS NEEDED
  3. VICODIN [Concomitant]
     Indication: PAIN
     Route: 048
  4. ADVIL [Concomitant]
     Indication: PAIN
  5. ASPIRIN [Concomitant]
     Indication: PAIN

REACTIONS (1)
  - AGEUSIA [None]
